FAERS Safety Report 18225494 (Version 1)
Quarter: 2020Q3

REPORT INFORMATION
  Report Type: Spontaneous
  Country: US (occurrence: US)
  Receive Date: 20200903
  Receipt Date: 20200903
  Transmission Date: 20201103
  Serious: Yes (Other)
  Sender: FDA-Public Use
  Company Number: US-PACIRA-202000337

PATIENT

DRUGS (4)
  1. EXPAREL [Suspect]
     Active Substance: BUPIVACAINE
     Indication: POSTOPERATIVE ANALGESIA
     Dosage: 125MG, MIXED W/ KETOROLAC 3 MG, LB 266MG, EPINEPHERINE 125MCG, SALINE FOR TOTAL OF 120ML
     Route: 052
  2. EXPAREL [Suspect]
     Active Substance: BUPIVACAINE
     Indication: POSTOPERATIVE ANALGESIA
     Dosage: LB 266MG, MIXED W/ KETOROLAC 30MG, BUPIVACAINE 125MG, EPINEPHERINE 125MCG, SALINE FOR TOTAL OF 120ML
     Route: 052
  3. KETOROLAC [Suspect]
     Active Substance: KETOROLAC TROMETHAMINE
     Indication: POSTOPERATIVE ANALGESIA
     Dosage: 30 MG, MIXED W/ BUPIVACAINE 125MG, LB 266MG, EPINEPHERINE 125MCG, SALINE FOR TOTAL OF 120ML
     Route: 052
  4. EPINEPHRINE. [Suspect]
     Active Substance: EPINEPHRINE
     Indication: POSTOPERATIVE ANALGESIA
     Dosage: 125MCG, MIXED W/ BUPIVACAINE 125MG, LB 266MG, KETOROLAC 30MG, SALINE FOR TOTAL OF 120ML
     Route: 052

REACTIONS (3)
  - Surgery [Unknown]
  - Fall [Unknown]
  - Labelled drug-drug interaction medication error [Unknown]
